FAERS Safety Report 9630668 (Version 1)
Quarter: 2013Q4

REPORT INFORMATION
  Report Type: Spontaneous
  Country: US (occurrence: None)
  Receive Date: 20131016
  Receipt Date: 20131016
  Transmission Date: 20140711
  Serious: Yes (Hospitalization)
  Sender: FDA-Public Use
  Company Number: None

PATIENT
  Age: 60 Year
  Sex: Male
  Weight: 90.4 kg

DRUGS (2)
  1. GABAPENTIN [Suspect]
     Indication: BACK PAIN
  2. GABAPENTIN [Suspect]
     Indication: RESTLESS LEGS SYNDROME

REACTIONS (1)
  - Mental status changes [None]
